FAERS Safety Report 5580262-8 (Version None)
Quarter: 2008Q1

REPORT INFORMATION
  Report Type: 
  Country: None (occurrence: None)
  Receive Date: 20080103
  Receipt Date: 20080102
  Transmission Date: 20080703
  Serious: Yes (Hospitalization)
  Sender: FDA-Public Use
  Company Number: A0685719A

PATIENT
  Age: 55 Year
  Sex: Male
  Weight: 87.5 kg

DRUGS (13)
  1. FOSAMPRENAVIR [Suspect]
     Dosage: 1400MG TWICE PER DAY
     Route: 048
     Dates: start: 20060123, end: 20070510
  2. KALETRA [Suspect]
     Dosage: 3TAB TWICE PER DAY
     Route: 048
     Dates: start: 20061028, end: 20070510
  3. MARAVIROC [Suspect]
     Dosage: 150MG TWICE PER DAY
     Route: 048
     Dates: start: 20060515, end: 20070510
  4. LAMIVUDINE [Concomitant]
     Dosage: 300MG PER DAY
     Route: 048
     Dates: start: 20060123
  5. ENFUVIRTIDE [Concomitant]
     Dosage: 90MG TWICE PER DAY
     Route: 058
     Dates: start: 20070501, end: 20070510
  6. FENOFIBRATE [Concomitant]
     Route: 048
     Dates: start: 19910101
  7. PANTOPRAZOLE SODIUM [Concomitant]
     Route: 048
     Dates: start: 20010101
  8. CELEXA [Concomitant]
     Route: 048
     Dates: start: 20000101
  9. CALCIUM [Concomitant]
     Route: 048
     Dates: start: 20000101
  10. COLESTYRAMINE [Concomitant]
     Dates: start: 20010101
  11. ACETYLSALICYLIC ACID SRT [Concomitant]
     Route: 048
     Dates: start: 20040601
  12. SOMATOSTATIN [Concomitant]
     Route: 058
     Dates: start: 20060227, end: 20070607
  13. PANCREAS EXTRACT [Concomitant]
     Route: 048
     Dates: end: 20070101

REACTIONS (4)
  - ABDOMINAL PAIN LOWER [None]
  - PANCREATITIS [None]
  - PYREXIA [None]
  - SMALL INTESTINAL OBSTRUCTION [None]
